FAERS Safety Report 8431055-5 (Version None)
Quarter: 2012Q2

REPORT INFORMATION
  Report Type: 
  Country: None (occurrence: None)
  Receive Date: 20120612
  Receipt Date: 20120605
  Transmission Date: 20120825
  Serious: Yes (Hospitalization, Other)
  Sender: FDA-Public Use
  Company Number: US-BAXTER-2012BAX007904

PATIENT
  Sex: Male

DRUGS (3)
  1. DIANEAL [Suspect]
     Dosage: 12 LITERS
     Route: 033
  2. DIANEAL [Suspect]
     Indication: PERITONEAL DIALYSIS
     Dosage: 12 LITERS
     Route: 033
  3. DIANEAL LOW CALCIUM W/ DEXTROSE 1.5% [Suspect]
     Indication: PERITONEAL DIALYSIS
     Dosage: 12 LITERS
     Route: 033

REACTIONS (3)
  - BRADYCARDIA [None]
  - HYPERTENSION [None]
  - FLUID OVERLOAD [None]
